FAERS Safety Report 19667818 (Version 1)
Quarter: 2021Q3

REPORT INFORMATION
  Report Type: Spontaneous
  Country: ES (occurrence: ES)
  Receive Date: 20210806
  Receipt Date: 20210806
  Transmission Date: 20211014
  Serious: Yes (Death, Hospitalization, Other)
  Sender: FDA-Public Use
  Company Number: ES-JNJFOC-20210764523

PATIENT
  Age: 74 Year
  Sex: Female

DRUGS (8)
  1. TAPENTADOL [Interacting]
     Active Substance: TAPENTADOL
     Indication: PAIN
     Dosage: LAST DATE /MAR/2021
     Route: 048
     Dates: start: 20210216
  2. METAMIZOLE [Concomitant]
     Active Substance: METAMIZOLE
     Indication: PAIN
     Route: 065
     Dates: start: 20201011, end: 20201222
  3. DUROGESIC [Suspect]
     Active Substance: FENTANYL
     Indication: BREAKTHROUGH PAIN
     Route: 065
     Dates: start: 20210216
  4. SERTRALINE [Suspect]
     Active Substance: SERTRALINE HYDROCHLORIDE
     Indication: ADJUSTMENT DISORDER WITH DEPRESSED MOOD
     Route: 065
     Dates: start: 202102, end: 20210301
  5. PARACETAMOL [Concomitant]
     Active Substance: ACETAMINOPHEN
     Indication: PAIN
     Route: 065
     Dates: start: 20201011, end: 20201222
  6. GABAPENTIN. [Concomitant]
     Active Substance: GABAPENTIN
     Indication: PAIN
     Route: 065
     Dates: start: 20210216
  7. TAPENTADOL [Interacting]
     Active Substance: TAPENTADOL
     Route: 048
     Dates: start: 20201222, end: 20210216
  8. OXYCODONE [Concomitant]
     Active Substance: OXYCODONE
     Indication: PRODUCT USED FOR UNKNOWN INDICATION
     Route: 051

REACTIONS (1)
  - Drug interaction [Unknown]
